FAERS Safety Report 11006170 (Version 1)
Quarter: 2015Q2

REPORT INFORMATION
  Report Type: Spontaneous
  Country: US (occurrence: US)
  Receive Date: 20150409
  Receipt Date: 20150409
  Transmission Date: 20150821
  Serious: No
  Sender: FDA-Public Use
  Company Number: US-ALLERGAN-1407738US

PATIENT
  Age: 58 Year
  Sex: Female

DRUGS (1)
  1. LATISSE [Suspect]
     Active Substance: BIMATOPROST
     Indication: GROWTH OF EYELASHES
     Dosage: UNK
     Dates: start: 20140304, end: 20140413

REACTIONS (4)
  - Corneal oedema [Unknown]
  - Blepharal pigmentation [Recovered/Resolved]
  - Skin discolouration [Recovered/Resolved]
  - Vision blurred [Unknown]
